FAERS Safety Report 16678528 (Version 4)
Quarter: 2019Q3

REPORT INFORMATION
  Report Type: Spontaneous
  Country: US (occurrence: US)
  Receive Date: 20190807
  Receipt Date: 20190829
  Transmission Date: 20191004
  Serious: Yes (Other)
  Sender: FDA-Public Use
  Company Number: US-ASTRAZENECA-2019SF11059

PATIENT
  Age: 55 Year
  Sex: Female
  Weight: 68.9 kg

DRUGS (5)
  1. FASENRA [Suspect]
     Active Substance: BENRALIZUMAB
     Indication: ASTHMA
     Dosage: 30.0MG UNKNOWN
     Route: 058
     Dates: start: 20190514, end: 20190731
  2. LEVOTHYROXINE. [Concomitant]
     Active Substance: LEVOTHYROXINE
  3. CAVITINH [Concomitant]
     Dosage: 10.0MG UNKNOWN
     Route: 048
  4. BREO ELLIPTA [Concomitant]
     Active Substance: FLUTICASONE FUROATE\VILANTEROL TRIFENATATE
     Indication: ASTHMA
     Dosage: 200-250 MG
  5. VENTOLIN [Concomitant]
     Active Substance: ALBUTEROL SULFATE
     Dosage: 20.0MG UNKNOWN
     Route: 055

REACTIONS (7)
  - Thyroid stimulating immunoglobulin increased [Unknown]
  - Tumour marker increased [Unknown]
  - Thyroid hormones increased [Unknown]
  - Malignant neoplasm progression [Unknown]
  - Thyroid cancer recurrent [Unknown]
  - Basedow^s disease [Unknown]
  - Papillary thyroid cancer [Unknown]
